FAERS Safety Report 19793335 (Version 3)
Quarter: 2021Q3

REPORT INFORMATION
  Report Type: Report from Study
  Country: CO (occurrence: CO)
  Receive Date: 20210906
  Receipt Date: 20210922
  Transmission Date: 20211014
  Serious: Yes (Hospitalization)
  Sender: FDA-Public Use
  Company Number: NVSC2021CO201168

PATIENT
  Sex: Female

DRUGS (1)
  1. ILARIS [Suspect]
     Active Substance: CANAKINUMAB
     Indication: STILL^S DISEASE
     Dosage: 150 MG, QMO
     Route: 058

REACTIONS (4)
  - Meningitis [Unknown]
  - Ill-defined disorder [Unknown]
  - Noninfective encephalitis [Unknown]
  - Headache [Unknown]
